FAERS Safety Report 21136895 (Version 1)
Quarter: 2022Q3

REPORT INFORMATION
  Report Type: Spontaneous
  Country: CN (occurrence: CN)
  Receive Date: 20220727
  Receipt Date: 20220727
  Transmission Date: 20221027
  Serious: Yes (Other)
  Sender: FDA-Public Use
  Company Number: CN-PFIZER INC-PV202200024039

PATIENT
  Age: 71 Year
  Sex: Female

DRUGS (5)
  1. TYGACIL [Suspect]
     Active Substance: TIGECYCLINE
     Indication: Pneumonia acinetobacter
     Dosage: 100 MG
     Route: 041
     Dates: start: 20180305, end: 20180305
  2. TYGACIL [Suspect]
     Active Substance: TIGECYCLINE
     Dosage: 100 MG, 2X/DAY
     Route: 041
     Dates: start: 20180306, end: 20180314
  3. POLYMYXIN B [Suspect]
     Active Substance: POLYMYXIN B
     Indication: Pneumonia acinetobacter
     Dosage: 50 MG, 2X/DAY
     Route: 041
     Dates: start: 20180306
  4. POLYMYXIN B [Suspect]
     Active Substance: POLYMYXIN B
     Dosage: 100 MG, 2X/DAY
     Route: 041
     Dates: start: 20180309
  5. POLYMYXIN B [Suspect]
     Active Substance: POLYMYXIN B
     Dosage: 25 MG, 2X/DAY
     Route: 045
     Dates: start: 20180309

REACTIONS (2)
  - Liver injury [Recovering/Resolving]
  - Off label use [Unknown]

NARRATIVE: CASE EVENT DATE: 20180306
